FAERS Safety Report 5310082-0 (Version None)
Quarter: 2007Q2

REPORT INFORMATION
  Report Type: 
  Country: None (occurrence: None)
  Receive Date: 20070427
  Receipt Date: 20070419
  Transmission Date: 20071010
  Serious: Yes (Other)
  Sender: FDA-Public Use
  Company Number: US-ABBOTT-07P-163-0365952-00

PATIENT
  Sex: Male

DRUGS (1)
  1. HUMIRA [Suspect]
     Indication: CROHN'S DISEASE
     Route: 058
     Dates: start: 20070417

REACTIONS (7)
  - ABNORMAL SENSATION IN EYE [None]
  - DYSGEUSIA [None]
  - FLUSHING [None]
  - HAEMOGLOBIN DECREASED [None]
  - INSOMNIA [None]
  - PARAESTHESIA [None]
  - STOMACH DISCOMFORT [None]
